FAERS Safety Report 11756026 (Version 3)
Quarter: 2017Q1

REPORT INFORMATION
  Report Type: Spontaneous
  Country: US (occurrence: US)
  Receive Date: 20151119
  Receipt Date: 20170113
  Transmission Date: 20170428
  Serious: Yes (Hospitalization, Other)
  Sender: FDA-Public Use
  Company Number: US-PFIZER INC-2015392350

PATIENT
  Age: 89 Year
  Sex: Female
  Weight: 48 kg

DRUGS (9)
  1. METOPROLOL TARTRATE. [Suspect]
     Active Substance: METOPROLOL TARTRATE
     Indication: CARDIAC DISORDER
     Dosage: 50 MG, 2X/DAY (HALF OF A TABLET)
     Route: 048
  2. VESICARE [Concomitant]
     Active Substance: SOLIFENACIN SUCCINATE
     Indication: URINE ANALYSIS ABNORMAL
     Dosage: 10 MG ONE TABLET BY MOUTH EVERY DAY
     Route: 048
  3. VESICARE [Concomitant]
     Active Substance: SOLIFENACIN SUCCINATE
     Dosage: UNK
  4. TRACLEER [Suspect]
     Active Substance: BOSENTAN
     Indication: PULMONARY HYPERTENSION
     Dosage: 125 MG, ONE TABLET DAILY
     Route: 048
  5. TRACLEER [Suspect]
     Active Substance: BOSENTAN
     Dosage: UNK
  6. VENTAVIS [Suspect]
     Active Substance: ILOPROST
     Indication: PULMONARY HYPERTENSION
     Dosage: ONE INHALATION BY MOUTH THREE TO FOUR TIMES A DAY
     Route: 048
  7. FUROSEMIDE. [Concomitant]
     Active Substance: FUROSEMIDE
     Indication: BLOOD PRESSURE MEASUREMENT
     Dosage: 20 MG ONE TABLET BY MOUTH EVERY DAY
     Route: 048
  8. REVATIO [Suspect]
     Active Substance: SILDENAFIL CITRATE
     Dosage: 20 MG ONE TABLET BY MOUTH THREE TIMES A DAY
     Route: 048
  9. REVATIO [Suspect]
     Active Substance: SILDENAFIL CITRATE
     Indication: PULMONARY HYPERTENSION
     Dosage: 20 MG, UNK
     Route: 048
     Dates: start: 2006

REACTIONS (7)
  - Fall [Unknown]
  - Heart rate increased [Recovering/Resolving]
  - Iron deficiency anaemia [Unknown]
  - Dyspnoea [Recovering/Resolving]
  - Feeling abnormal [Unknown]
  - Pain [Unknown]
  - Hypotension [Not Recovered/Not Resolved]

NARRATIVE: CASE EVENT DATE: 201511
